FAERS Safety Report 7527843-X (Version None)
Quarter: 2011Q2

REPORT INFORMATION
  Report Type: 
  Country: None (occurrence: None)
  Receive Date: 20110531
  Receipt Date: 20110516
  Transmission Date: 20111010
  Serious: Yes (Hospitalization, Other)
  Sender: FDA-Public Use
  Company Number: 2011MA005985

PATIENT
  Age: 33 Year
  Sex: Male

DRUGS (4)
  1. VENLAFAXINE HYDROCHLORIDE [Suspect]
     Dosage: 300 MG; OD;
  2. CLOMIPRAMINE HYDROCHLORIDE [Concomitant]
  3. VALPROIC ACID [Concomitant]
  4. QUETIAPINE [Concomitant]

REACTIONS (20)
  - DEPRESSION [None]
  - LOOSE ASSOCIATIONS [None]
  - DISTURBANCE IN ATTENTION [None]
  - ACTIVITIES OF DAILY LIVING IMPAIRED [None]
  - EUPHORIC MOOD [None]
  - DYSPHORIA [None]
  - RESTLESSNESS [None]
  - DRUG DEPENDENCE [None]
  - LOGORRHOEA [None]
  - AGITATION [None]
  - TREATMENT NONCOMPLIANCE [None]
  - MANIA [None]
  - FLIGHT OF IDEAS [None]
  - DISSOCIATION [None]
  - PSYCHOMOTOR HYPERACTIVITY [None]
  - DELUSION OF GRANDEUR [None]
  - APATHY [None]
  - ATTENTION DEFICIT/HYPERACTIVITY DISORDER [None]
  - THINKING ABNORMAL [None]
  - COMPULSIONS [None]
